FAERS Safety Report 7209604-4 (Version None)
Quarter: 2011Q1

REPORT INFORMATION
  Report Type: 
  Country: None (occurrence: None)
  Receive Date: 20110104
  Receipt Date: 20101224
  Transmission Date: 20110831
  Serious: Yes (Other)
  Sender: FDA-Public Use
  Company Number: JP-PFIZER INC-2010169579

PATIENT
  Age: 57 Year
  Sex: Male
  Weight: 95 kg

DRUGS (11)
  1. OXINORM [Concomitant]
     Dosage: UNK
     Route: 048
  2. EVAMYL [Concomitant]
     Dosage: UNK
     Route: 048
  3. GABAPENTIN [Suspect]
     Indication: PAIN
     Dosage: 600 MG, DAILY
     Route: 048
     Dates: start: 20101115, end: 20101119
  4. GABAPENTIN [Suspect]
     Dosage: 400 MG, DAILY
     Route: 048
     Dates: start: 20101202, end: 20101203
  5. OXYCONTIN [Suspect]
     Indication: CANCER PAIN
     Dosage: 5 MG, 2X/DAY
     Route: 048
     Dates: start: 20101115, end: 20101116
  6. OXYCONTIN [Suspect]
     Dosage: 10 MG, 2X/DAY
     Route: 048
     Dates: start: 20101117, end: 20101119
  7. ALFAROL [Concomitant]
     Dosage: UNK
     Route: 048
  8. METHYCOBAL [Concomitant]
     Dosage: UNK
     Route: 048
  9. NOVAMIN [Suspect]
     Indication: NAUSEA
     Dosage: 5 MG, 3X/DAY
     Route: 048
     Dates: start: 20101115, end: 20101122
  10. VOLTAREN [Concomitant]
     Dosage: UNK
     Route: 048
  11. TAMSULOSIN HCL [Concomitant]
     Dosage: UNK
     Route: 048

REACTIONS (3)
  - PYREXIA [None]
  - C-REACTIVE PROTEIN INCREASED [None]
  - HEPATIC FUNCTION ABNORMAL [None]
